FAERS Safety Report 9673327 (Version 1)
Quarter: 2013Q4

REPORT INFORMATION
  Report Type: Spontaneous
  Country: US (occurrence: US)
  Receive Date: 20131106
  Receipt Date: 20131106
  Transmission Date: 20140711
  Serious: No
  Sender: FDA-Public Use
  Company Number: US-AMGEN-USASP2013071492

PATIENT
  Age: 57 Year
  Sex: Male

DRUGS (3)
  1. ENBREL [Suspect]
     Indication: PSORIATIC ARTHROPATHY
     Dosage: 50 MG, QWK
     Route: 065
     Dates: start: 20130719
  2. ENBREL [Suspect]
     Indication: PSORIASIS
  3. METHOTREXATE [Concomitant]
     Dosage: 2.5 MG, QWK, SEVEN TABS
     Dates: start: 201204

REACTIONS (7)
  - Joint stiffness [Not Recovered/Not Resolved]
  - Contusion [Not Recovered/Not Resolved]
  - Skin haemorrhage [Not Recovered/Not Resolved]
  - Nocturia [Not Recovered/Not Resolved]
  - International normalised ratio increased [Not Recovered/Not Resolved]
  - Injection site bruising [Recovered/Resolved]
  - Injection site reaction [Recovered/Resolved]
